FAERS Safety Report 24757304 (Version 1)
Quarter: 2024Q4

REPORT INFORMATION
  Report Type: Spontaneous
  Country: SE (occurrence: SE)
  Receive Date: 20241220
  Receipt Date: 20241220
  Transmission Date: 20250115
  Serious: Yes (Other)
  Sender: ABBVIE
  Company Number: None

PATIENT
  Age: 55 Year
  Sex: Female

DRUGS (1)
  1. RINVOQ [Suspect]
     Active Substance: UPADACITINIB
     Indication: Rheumatoid arthritis
     Dosage: FORM STRENGTH: 15 MILLIGRAM
     Route: 048
     Dates: start: 20240409, end: 20241027

REACTIONS (3)
  - Bell^s palsy [Recovering/Resolving]
  - Herpes zoster [Recovering/Resolving]
  - Vestibular neuronitis [Recovering/Resolving]

NARRATIVE: CASE EVENT DATE: 20241012
